FAERS Safety Report 24209265 (Version 1)
Quarter: 2024Q3

REPORT INFORMATION
  Report Type: Spontaneous
  Country: CN (occurrence: CN)
  Receive Date: 20240814
  Receipt Date: 20240814
  Transmission Date: 20241016
  Serious: Yes (Other)
  Sender: PFIZER
  Company Number: CN-PFIZER INC-PV202400104199

PATIENT
  Age: 62 Year
  Sex: Female
  Weight: 65 kg

DRUGS (5)
  1. SOLU-MEDROL [Suspect]
     Active Substance: METHYLPREDNISOLONE SODIUM SUCCINATE
     Indication: Febrile infection
     Dosage: 40 MG, 1X/DAY
     Route: 041
     Dates: start: 20240717, end: 20240719
  2. PIPERACILLIN SODIUM\TAZOBACTAM SODIUM [Suspect]
     Active Substance: PIPERACILLIN SODIUM\TAZOBACTAM SODIUM
     Indication: Febrile infection
     Dosage: 4.5 G, 3X/DAY (EVERY 8 HOURS)
     Route: 041
     Dates: start: 20240714, end: 20240717
  3. FAMCICLOVIR [Suspect]
     Active Substance: FAMCICLOVIR
     Indication: Febrile infection
     Dosage: 0.25 G, 3X/DAY (AFTER MEALS ONCE EVERY 8 HOURS)
     Route: 048
     Dates: start: 20240717, end: 20240719
  4. MIN SHENG [Concomitant]
     Indication: Vehicle solution use
     Dosage: 100 ML, 3X/DAY (EVERY 8 HOURS)
     Route: 041
     Dates: start: 20240714, end: 20240717
  5. MIN SHENG [Concomitant]
     Dosage: 100 ML, 1X/DAY
     Route: 041
     Dates: start: 20240717, end: 20240719

REACTIONS (3)
  - Dermatitis allergic [Recovering/Resolving]
  - Pruritus [Recovering/Resolving]
  - Off label use [Unknown]

NARRATIVE: CASE EVENT DATE: 20240717
